FAERS Safety Report 5005529-3 (Version None)
Quarter: 2006Q2

REPORT INFORMATION
  Report Type: 
  Country: None (occurrence: None)
  Receive Date: 20060518
  Receipt Date: 20060330
  Transmission Date: 20061013
  Serious: Yes (Other)
  Sender: FDA-Public Use
  Company Number: US-ROCHE-442859

PATIENT
  Age: 41 Year
  Sex: Female
  Weight: 59.9 kg

DRUGS (2)
  1. PEGASYS [Suspect]
     Route: 058
     Dates: start: 20060217
  2. COPEGUS [Suspect]
     Route: 048
     Dates: start: 20060217

REACTIONS (7)
  - DYSGEUSIA [None]
  - MASS [None]
  - MENORRHAGIA [None]
  - TONGUE BLISTERING [None]
  - TONGUE HAEMORRHAGE [None]
  - UTERINE LEIOMYOMA [None]
  - WHITE BLOOD CELL COUNT DECREASED [None]
